FAERS Safety Report 17458531 (Version 1)
Quarter: 2020Q1

REPORT INFORMATION
  Report Type: Spontaneous
  Country: US (occurrence: US)
  Receive Date: 20200225
  Receipt Date: 20200225
  Transmission Date: 20200409
  Serious: Yes (Other)
  Sender: FDA-Public Use
  Company Number: US-SA-2020SA046205

PATIENT
  Sex: Female

DRUGS (2)
  1. DULCOEASE [Suspect]
     Active Substance: DOCUSATE SODIUM
  2. DULCOLAX STOOL SOFTENER [Suspect]
     Active Substance: DOCUSATE SODIUM

REACTIONS (4)
  - Neoplasm malignant [Unknown]
  - Peroneal nerve palsy [Unknown]
  - Back injury [Unknown]
  - Eye disorder [Unknown]
